FAERS Safety Report 6257813-3 (Version None)
Quarter: 2009Q3

REPORT INFORMATION
  Report Type: 
  Country: None (occurrence: None)
  Receive Date: 20090706
  Receipt Date: 20090626
  Transmission Date: 20100115
  Serious: Yes (Life-Threatening, Hospitalization)
  Sender: FDA-Public Use
  Company Number: DE-ABBOTT-09P-062-0578033-00

PATIENT
  Sex: Female
  Weight: 73 kg

DRUGS (2)
  1. HUMIRA [Suspect]
     Indication: POLYARTHRITIS
     Route: 058
     Dates: start: 20051101
  2. IMMUNOSPORIN [Suspect]
     Indication: OVERLAP SYNDROME
     Route: 048
     Dates: start: 20040601, end: 20080801

REACTIONS (2)
  - PANCREATITIS ACUTE [None]
  - SEPSIS [None]
